FAERS Safety Report 7773178-X (Version None)
Quarter: 2011Q3

REPORT INFORMATION
  Report Type: 
  Country: None (occurrence: None)
  Receive Date: 20110922
  Receipt Date: 20110113
  Transmission Date: 20111222
  Serious: No
  Sender: FDA-Public Use
  Company Number: US-ASTRAZENECA-2008UW05826

PATIENT
  Age: 62 Year
  Sex: Female
  Weight: 68 kg

DRUGS (17)
  1. SEROQUEL [Suspect]
     Dosage: 25MG, TAKE ONE TABLET AT TID  AND TWO AT TS HS
     Route: 048
     Dates: start: 20040701
  2. ALPHAGAN [Concomitant]
     Dosage: ONE DROP INTO OU BID
     Dates: start: 20040719
  3. SINGULAIR [Concomitant]
     Dates: start: 20030601
  4. ALBUTEROL [Concomitant]
     Dosage: PRN
     Dates: start: 20030601
  5. SEROQUEL [Suspect]
     Indication: BIPOLAR DISORDER
     Route: 048
     Dates: start: 20030507, end: 20050701
  6. SEROQUEL [Suspect]
     Route: 048
     Dates: start: 20040803, end: 20060908
  7. SEROQUEL [Suspect]
     Dosage: 25MG, TAKE ONE TABLET AT TID  AND TWO AT TS HS
     Route: 048
     Dates: start: 20040701
  8. PROZAC [Concomitant]
     Dates: end: 20030619
  9. PREMARIN [Concomitant]
     Dosage: 0.625 MG QD
     Dates: start: 20030619
  10. LITHIUM [Concomitant]
     Route: 048
     Dates: end: 20030619
  11. SEROQUEL [Suspect]
     Route: 048
     Dates: start: 20040803, end: 20060908
  12. SEROQUEL [Suspect]
     Indication: DEPRESSION
     Route: 048
     Dates: start: 20030507, end: 20050701
  13. PREVACID [Concomitant]
     Dates: start: 20030619
  14. CIPRO XR [Concomitant]
     Dosage: 500 MG X 3
     Dates: start: 20030619
  15. MONOPRIL [Concomitant]
  16. VIOXX [Concomitant]
  17. PREDNISOLONE [Concomitant]
     Dosage: ONE DROP INTO OU BID
     Dates: start: 20040709

REACTIONS (3)
  - ILL-DEFINED DISORDER [None]
  - TYPE 2 DIABETES MELLITUS [None]
  - GLAUCOMA [None]
